FAERS Safety Report 6024269-5 (Version None)
Quarter: 2008Q4

REPORT INFORMATION
  Report Type: 
  Country: None (occurrence: None)
  Receive Date: 20081229
  Receipt Date: 20081217
  Transmission Date: 20090506
  Serious: Yes (Hospitalization)
  Sender: FDA-Public Use
  Company Number: 2008SP025667

PATIENT
  Age: 33 Year
  Sex: Female

DRUGS (6)
  1. VIRAFERON [Suspect]
     Indication: MALIGNANT MELANOMA
     Dosage: 350 MG; QW; SC
     Route: 058
     Dates: start: 20080605, end: 20081015
  2. STABLON [Concomitant]
  3. XANAX [Concomitant]
  4. PARACETAMOL [Concomitant]
  5. IBUPROFENE [Concomitant]
  6. VOGALENE [Concomitant]

REACTIONS (5)
  - CYTOLYTIC HEPATITIS [None]
  - HEPATITIS TOXIC [None]
  - INFLUENZA [None]
  - NEUTROPENIA [None]
  - THROMBOCYTOPENIA [None]
